FAERS Safety Report 4399353-2 (Version None)
Quarter: 2004Q3

REPORT INFORMATION
  Report Type: 
  Country: None (occurrence: None)
  Receive Date: 20040712
  Receipt Date: 20040628
  Transmission Date: 20050211
  Serious: Yes (Other)
  Sender: FDA-Public Use
  Company Number: 001-0902-M0200033

PATIENT
  Age: 54 Year
  Sex: Male
  Weight: 72.5755 kg

DRUGS (4)
  1. NARDIL [Suspect]
     Indication: DEPRESSION
     Dosage: 45 MG (15 MG, 3 IN 1 D), ORAL
     Route: 048
     Dates: start: 20010101
  2. LIPITOR [Suspect]
     Indication: BLOOD CHOLESTEROL INCREASED
     Dosage: 10 MG (1 IN 1 D)
  3. ALPRAZOLAM [Concomitant]
  4. ZOLPIDEM TARTRATE [Concomitant]

REACTIONS (12)
  - ARTHRALGIA [None]
  - ARTHRITIS [None]
  - AUTOIMMUNE DISORDER [None]
  - CARDIAC STRESS TEST ABNORMAL [None]
  - CYST [None]
  - ELECTROCARDIOGRAM T WAVE AMPLITUDE DECREASED [None]
  - JOINT SWELLING [None]
  - LUPUS-LIKE SYNDROME [None]
  - OEDEMA PERIPHERAL [None]
  - PAIN IN EXTREMITY [None]
  - TENDON DISORDER [None]
  - WEIGHT INCREASED [None]
